FAERS Safety Report 19264329 (Version 1)
Quarter: 2021Q2

REPORT INFORMATION
  Report Type: Spontaneous
  Country: GB (occurrence: GB)
  Receive Date: 20210517
  Receipt Date: 20210517
  Transmission Date: 20210717
  Serious: Yes (Death, Hospitalization, Other)
  Sender: FDA-Public Use
  Company Number: GB-SA-2021SA159059

PATIENT
  Age: 57 Year
  Sex: Female

DRUGS (2)
  1. CABLIVI [Suspect]
     Active Substance: CAPLACIZUMAB-YHDP
     Dosage: RESTARTED ON DAY 7
  2. CABLIVI [Suspect]
     Active Substance: CAPLACIZUMAB-YHDP
     Indication: THROMBOTIC THROMBOCYTOPENIC PURPURA

REACTIONS (8)
  - Depressed level of consciousness [Fatal]
  - Hemiparesis [Fatal]
  - Mydriasis [Fatal]
  - Subarachnoid haemorrhage [Fatal]
  - Respiration abnormal [Fatal]
  - Haemorrhage intracranial [Fatal]
  - Confusional state [Fatal]
  - Hemianopia homonymous [Fatal]
